FAERS Safety Report 9752170 (Version 1)
Quarter: 2013Q4

REPORT INFORMATION
  Report Type: Spontaneous
  Country: US (occurrence: None)
  Receive Date: 20131211
  Receipt Date: 20131211
  Transmission Date: 20140711
  Serious: No
  Sender: FDA-Public Use
  Company Number: None

PATIENT
  Age: 73 Year
  Sex: Female
  Weight: 62.14 kg

DRUGS (2)
  1. FLOVENT HFA [Suspect]
     Indication: CHRONIC OBSTRUCTIVE PULMONARY DISEASE
  2. PROAIR HFA [Concomitant]
     Dosage: INHALF ONE PUFF 3 TIMES DAILY
     Route: 055

REACTIONS (4)
  - Nervousness [None]
  - Tremor [None]
  - Increased upper airway secretion [None]
  - Nausea [None]
